FAERS Safety Report 6583447-7 (Version None)
Quarter: 2010Q1

REPORT INFORMATION
  Report Type: 
  Country: None (occurrence: None)
  Receive Date: 20100216
  Receipt Date: 20100208
  Transmission Date: 20100710
  Serious: Yes (Death)
  Sender: FDA-Public Use
  Company Number: FR-TEVA-223999ISR

PATIENT
  Age: 41 Year
  Sex: Male

DRUGS (2)
  1. CISPLATIN [Suspect]
     Route: 042
  2. GEMCITABINE [Suspect]
     Route: 042

REACTIONS (3)
  - BONE MARROW FAILURE [None]
  - INTESTINAL HAEMORRHAGE [None]
  - REVERSIBLE POSTERIOR LEUKOENCEPHALOPATHY SYNDROME [None]
